FAERS Safety Report 11088642 (Version 3)
Quarter: 2015Q2

REPORT INFORMATION
  Report Type: Spontaneous
  Country: FR (occurrence: FR)
  Receive Date: 20150504
  Receipt Date: 20150609
  Transmission Date: 20150821
  Serious: Yes (Hospitalization)
  Sender: FDA-Public Use
  Company Number: FR-GLAXOSMITHKLINE-FR2015GSK057846

PATIENT
  Age: 64 Year
  Sex: Female

DRUGS (8)
  1. METHYLPREDNISOLONE. [Suspect]
     Active Substance: METHYLPREDNISOLONE
     Indication: SARCOMA UTERUS
     Dosage: UNK
     Route: 042
     Dates: start: 20130521, end: 20130523
  2. IFOSFAMIDE. [Suspect]
     Active Substance: IFOSFAMIDE
     Indication: SARCOMA UTERUS
     Dosage: UNK
     Route: 042
     Dates: start: 20130523, end: 20130523
  3. DOXORUBICINE [Suspect]
     Active Substance: DOXORUBICIN
     Indication: SARCOMA UTERUS
     Dosage: 1 DF, CYC
     Route: 042
     Dates: start: 20130521, end: 20130521
  4. IFOSFAMIDE EG [Suspect]
     Active Substance: IFOSFAMIDE
     Indication: SARCOMA UTERUS
     Dosage: UNK
     Route: 042
     Dates: start: 20130523, end: 20130523
  5. HOLOXAN [Suspect]
     Active Substance: IFOSFAMIDE
     Indication: SARCOMA UTERUS
     Dosage: UNK
     Route: 042
     Dates: start: 20130521, end: 20130523
  6. UROMITEXAN [Suspect]
     Active Substance: MESNA
     Indication: SARCOMA UTERUS
     Dosage: UNK
     Route: 042
     Dates: start: 20130521, end: 20130523
  7. DACARBAZINE. [Suspect]
     Active Substance: DACARBAZINE
     Indication: SARCOMA UTERUS
     Dosage: UNK
     Route: 042
     Dates: start: 20130521, end: 20130523
  8. ZOPHREN [Suspect]
     Active Substance: ONDANSETRON
     Indication: SARCOMA UTERUS
     Dosage: 8 MG, CYC
     Route: 042
     Dates: start: 20130521, end: 20130523

REACTIONS (2)
  - Confusional state [Recovering/Resolving]
  - Dyskinesia [Recovering/Resolving]

NARRATIVE: CASE EVENT DATE: 201305
